FAERS Safety Report 25004428 (Version 1)
Quarter: 2025Q1

REPORT INFORMATION
  Report Type: Spontaneous
  Country: US (occurrence: None)
  Receive Date: 20250222
  Receipt Date: 20250222
  Transmission Date: 20250408
  Serious: Yes (Hospitalization)
  Sender: FDA-CTU
  Company Number: None

PATIENT
  Sex: Male

DRUGS (1)
  1. NUCALA [Suspect]
     Active Substance: MEPOLIZUMAB
     Route: 058
     Dates: start: 202404

REACTIONS (5)
  - Weight decreased [None]
  - Influenza [None]
  - Arthralgia [None]
  - Dyspnoea [None]
  - Cough [None]
